FAERS Safety Report 21378163 (Version 1)
Quarter: 2022Q3

REPORT INFORMATION
  Report Type: Spontaneous
  Country: JP (occurrence: JP)
  Receive Date: 20220926
  Receipt Date: 20220926
  Transmission Date: 20221027
  Serious: Yes (Other)
  Sender: FDA-Public Use
  Company Number: JP-SUN PHARMACEUTICAL INDUSTRIES LTD-2022R1-355584

PATIENT
  Age: 82 Year
  Sex: Male

DRUGS (1)
  1. DISOPYRAMIDE [Suspect]
     Active Substance: DISOPYRAMIDE
     Indication: Syncope
     Dosage: 300 MILLIGRAM, DAILY
     Route: 048

REACTIONS (4)
  - Renal impairment [Unknown]
  - Drug level increased [Unknown]
  - Dry mouth [Unknown]
  - Dysuria [Unknown]
